FAERS Safety Report 5321717-0 (Version None)
Quarter: 2007Q2

REPORT INFORMATION
  Report Type: 
  Country: None (occurrence: None)
  Receive Date: 20070220
  Receipt Date: 20061004
  Transmission Date: 20071010
  Serious: No
  Sender: FDA-Public Use
  Company Number: TPA2006A01726

PATIENT
  Age: 43 Year
  Sex: Male
  Weight: 96.1626 kg

DRUGS (4)
  1. ROZEREM [Suspect]
     Indication: EARLY MORNING AWAKENING
     Dosage: PER ORAL
     Route: 048
     Dates: start: 20061002, end: 20061003
  2. ROZEREM [Suspect]
     Indication: INITIAL INSOMNIA
     Dosage: PER ORAL
     Route: 048
     Dates: start: 20061002, end: 20061003
  3. ROZEREM [Suspect]
     Indication: INSOMNIA
     Dosage: PER ORAL
     Route: 048
     Dates: start: 20061002, end: 20061003
  4. UNSPECIFIED PSYCHIATRIC DRUGS (ALL OTHER THERAPEUTIC PRODUCTS) [Concomitant]

REACTIONS (4)
  - FEELING JITTERY [None]
  - INITIAL INSOMNIA [None]
  - INSOMNIA [None]
  - POOR QUALITY SLEEP [None]
